FAERS Safety Report 7336559-4 (Version None)
Quarter: 2011Q1

REPORT INFORMATION
  Report Type: 
  Country: None (occurrence: None)
  Receive Date: 20110307
  Receipt Date: 20110301
  Transmission Date: 20110831
  Serious: Yes (Hospitalization, Disabling, Other)
  Sender: FDA-Public Use
  Company Number: US-AMGEN-QUU436987

PATIENT
  Age: 66 Year
  Sex: Female
  Weight: 83.1 kg

DRUGS (13)
  1. IRON [Concomitant]
     Dosage: UNK UNK, QD
     Route: 048
  2. COREG [Concomitant]
  3. CYANOCOBALAMIN [Concomitant]
     Dosage: 1000 MG, QWK
     Route: 058
  4. OMEPRAZOLE [Concomitant]
  5. ASPIRIN [Concomitant]
  6. NPLATE [Suspect]
     Indication: IDIOPATHIC THROMBOCYTOPENIC PURPURA
     Dosage: 1 A?G/KG, UNK
     Dates: start: 20100406, end: 20100519
  7. RAMIPRIL [Concomitant]
  8. NEBIVOLOL HCL [Concomitant]
     Dosage: UNK UNK, QD
     Route: 048
  9. ZOCOR [Concomitant]
  10. SYNTHROID [Concomitant]
  11. NEURONTIN [Concomitant]
  12. AMARYL [Concomitant]
  13. GLYBURIDE [Concomitant]

REACTIONS (6)
  - ANAEMIA [None]
  - CEREBROVASCULAR ACCIDENT [None]
  - EMBOLISM ARTERIAL [None]
  - CONTUSION [None]
  - HAEMORRHAGE [None]
  - THROMBOCYTOPENIA [None]
